FAERS Safety Report 9156389 (Version 1)
Quarter: 2013Q1

REPORT INFORMATION
  Report Type: Spontaneous
  Country: US (occurrence: None)
  Receive Date: 20130307
  Receipt Date: 20130307
  Transmission Date: 20140127
  Serious: Yes (Other)
  Sender: FDA-Public Use
  Company Number: None

PATIENT
  Sex: Female

DRUGS (2)
  1. RIBAVIRIN [Suspect]
     Indication: HEPATITIS C
     Route: 048
     Dates: start: 20121114
  2. PEGASYS [Suspect]
     Indication: HEPATITIS C
     Dosage: ONCE A WEEK
     Route: 058
     Dates: start: 20121114

REACTIONS (5)
  - Depression [None]
  - Amnesia [None]
  - Fatigue [None]
  - Insomnia [None]
  - Mania [None]
